FAERS Safety Report 23569643 (Version 1)
Quarter: 2024Q1

REPORT INFORMATION
  Report Type: Spontaneous
  Country: FR (occurrence: FR)
  Receive Date: 20240227
  Receipt Date: 20240227
  Transmission Date: 20240410
  Serious: Yes (Hospitalization, Other)
  Sender: FDA-Public Use
  Company Number: FR-Accord-408514

PATIENT
  Age: 30 Year
  Sex: Female

DRUGS (5)
  1. CLOFARABINE [Suspect]
     Active Substance: CLOFARABINE
     Indication: Chemotherapy
  2. ETOPOSIDE [Suspect]
     Active Substance: ETOPOSIDE
     Indication: Chemotherapy
  3. MELPHALAN [Suspect]
     Active Substance: MELPHALAN
     Indication: Chemotherapy
  4. CYCLOSPORINE [Concomitant]
     Active Substance: CYCLOSPORINE
     Indication: Immunosuppression
  5. MYCOPHENOLIC ACID [Concomitant]
     Active Substance: MYCOPHENOLIC ACID
     Indication: Immunosuppression

REACTIONS (2)
  - Sepsis [Unknown]
  - Pyelonephritis acute [Unknown]
